FAERS Safety Report 20619350 (Version 1)
Quarter: 2022Q1

REPORT INFORMATION
  Report Type: Report from Study
  Country: CA (occurrence: CA)
  Receive Date: 20220322
  Receipt Date: 20220322
  Transmission Date: 20220423
  Serious: Yes (Other)
  Sender: FDA-Public Use
  Company Number: CA-ABBVIE-22K-028-4324418-00

PATIENT
  Age: 63 Year
  Sex: Male

DRUGS (1)
  1. SKYRIZI [Suspect]
     Active Substance: RISANKIZUMAB-RZAA
     Indication: Psoriasis
     Route: 058
     Dates: start: 20211125

REACTIONS (4)
  - Pelvic fracture [Unknown]
  - Arthralgia [Unknown]
  - Pain [Unknown]
  - Wheelchair user [Unknown]

NARRATIVE: CASE EVENT DATE: 20211201
